FAERS Safety Report 8168478-8 (Version None)
Quarter: 2012Q1

REPORT INFORMATION
  Report Type: 
  Country: None (occurrence: None)
  Receive Date: 20120227
  Receipt Date: 20120227
  Transmission Date: 20120608
  Serious: Yes (Hospitalization, Disabling)
  Sender: FDA-Public Use
  Company Number: None

PATIENT
  Sex: Male
  Weight: 72.5 kg

DRUGS (1)
  1. METFORMIN HCL [Suspect]

REACTIONS (7)
  - FALL [None]
  - ATRIAL FLUTTER [None]
  - LACTIC ACIDOSIS [None]
  - BRADYCARDIA [None]
  - SHOCK [None]
  - WEIGHT DECREASED [None]
  - NAUSEA [None]
